FAERS Safety Report 5076854-5 (Version None)
Quarter: 2006Q3

REPORT INFORMATION
  Report Type: 
  Country: None (occurrence: None)
  Receive Date: 20060807
  Receipt Date: 20060725
  Transmission Date: 20061208
  Serious: Yes (Other)
  Sender: FDA-Public Use
  Company Number: CHPA2006US07223

PATIENT
  Age: 26 Year
  Sex: Male
  Weight: 74.8 kg

DRUGS (2)
  1. EXCEDRIN QUICKTAB (NCH) (ACETAMINOPHEN (PARACETAMOL), CAFFEINE) TABLET [Suspect]
     Indication: MIGRAINE
     Dosage: 2 DF,1 TO 2 TIMES A WEEK, ORAL
     Route: 048
     Dates: start: 20020101, end: 20060101
  2. EXCEDRIN TENSION HEADACHE(NCH)(ACETAMINOPHEN (PARACETAMOL), CAFFEINE) [Suspect]
     Indication: MIGRAINE
     Dosage: 2 DF, 1 TO 2 TIMES A WEEK, ORAL
     Route: 048
     Dates: start: 20060101

REACTIONS (3)
  - DRUG ABUSER [None]
  - DYSPHAGIA [None]
  - RETCHING [None]
